FAERS Safety Report 14689060 (Version 2)
Quarter: 2018Q2

REPORT INFORMATION
  Report Type: Spontaneous
  Country: SE (occurrence: SE)
  Receive Date: 20180328
  Receipt Date: 20180518
  Transmission Date: 20180711
  Serious: Yes (Hospitalization)
  Sender: FDA-Public Use
  Company Number: SE-JNJFOC-20180328213

PATIENT
  Age: 62 Year
  Sex: Female

DRUGS (3)
  1. RISPERDAL [Suspect]
     Active Substance: RISPERIDONE
     Indication: PSYCHOTIC DISORDER
     Route: 065
  2. RISPERDAL CONSTA [Suspect]
     Active Substance: RISPERIDONE
     Indication: PSYCHOTIC DISORDER
     Dosage: 6 MONTHS AGO
     Route: 065
     Dates: start: 2017
  3. LITHIUM. [Concomitant]
     Active Substance: LITHIUM
     Route: 065

REACTIONS (6)
  - Hyperhidrosis [Unknown]
  - Muscle spasms [Unknown]
  - Drug ineffective [Unknown]
  - Nausea [Unknown]
  - Ileus paralytic [Recovered/Resolved]
  - Pneumonia [Unknown]

NARRATIVE: CASE EVENT DATE: 201803
